FAERS Safety Report 25464057 (Version 1)
Quarter: 2025Q2

REPORT INFORMATION
  Report Type: Spontaneous
  Country: ES (occurrence: ES)
  Receive Date: 20250621
  Receipt Date: 20250621
  Transmission Date: 20250716
  Serious: Yes (Death, Life-Threatening, Hospitalization)
  Sender: ACCORD
  Company Number: ES-MLMSERVICE-20250603-PI525037-00082-1

PATIENT
  Age: 74 Year
  Sex: Female

DRUGS (12)
  1. CARBOPLATIN [Suspect]
     Active Substance: CARBOPLATIN
     Indication: Lung adenocarcinoma
  2. PEMETREXED [Suspect]
     Active Substance: PEMETREXED
     Indication: Lung adenocarcinoma
  3. PEMBROLIZUMAB [Suspect]
     Active Substance: PEMBROLIZUMAB
     Indication: Lung adenocarcinoma
  4. PEMETREXED [Suspect]
     Active Substance: PEMETREXED
     Indication: Metastases to meninges
  5. PEMBROLIZUMAB [Suspect]
     Active Substance: PEMBROLIZUMAB
     Indication: Metastases to meninges
  6. CARBOPLATIN [Suspect]
     Active Substance: CARBOPLATIN
     Indication: Metastases to liver
  7. CARBOPLATIN [Suspect]
     Active Substance: CARBOPLATIN
     Indication: Metastases to bone
  8. PEMETREXED [Suspect]
     Active Substance: PEMETREXED
     Indication: Metastases to liver
  9. PEMETREXED [Suspect]
     Active Substance: PEMETREXED
     Indication: Metastases to bone
  10. PEMBROLIZUMAB [Suspect]
     Active Substance: PEMBROLIZUMAB
     Indication: Metastases to liver
  11. PEMBROLIZUMAB [Suspect]
     Active Substance: PEMBROLIZUMAB
     Indication: Metastases to bone
  12. CARBOPLATIN [Suspect]
     Active Substance: CARBOPLATIN
     Indication: Metastases to meninges

REACTIONS (5)
  - Mucosal inflammation [Unknown]
  - Neutropenia [Unknown]
  - Vomiting [Unknown]
  - Fungaemia [Fatal]
  - Fusarium infection [Fatal]
